FAERS Safety Report 7484152-5 (Version None)
Quarter: 2011Q2

REPORT INFORMATION
  Report Type: 
  Country: None (occurrence: None)
  Receive Date: 20110517
  Receipt Date: 20110504
  Transmission Date: 20111010
  Serious: Yes (Other)
  Sender: FDA-Public Use
  Company Number: DE-ELI_LILLY_AND_COMPANY-DE201105001160

PATIENT
  Age: 65 Year
  Sex: Female

DRUGS (4)
  1. LORAZEPAM [Concomitant]
     Dosage: UNK, UNKNOWN
     Route: 065
  2. ZYPREXA [Suspect]
     Indication: DEPRESSIVE DELUSION
     Dosage: 5 MG, UNKNOWN
     Route: 048
  3. MIRTAZAPIN [Concomitant]
     Dosage: UNK, UNKNOWN
     Route: 065
  4. VENLAFAXINE [Concomitant]

REACTIONS (1)
  - AGRANULOCYTOSIS [None]
